FAERS Safety Report 14148139 (Version 1)
Quarter: 2017Q4

REPORT INFORMATION
  Report Type: Spontaneous
  Country: US (occurrence: US)
  Receive Date: 20171101
  Receipt Date: 20171101
  Transmission Date: 20180321
  Serious: Yes (Hospitalization, Other)
  Sender: FDA-Public Use
  Company Number: US-CIPLA LTD.-2017US19001

PATIENT

DRUGS (6)
  1. CAPECITABINE. [Suspect]
     Active Substance: CAPECITABINE
     Indication: ADENOCARCINOMA OF COLON
     Dosage: UNK
     Route: 065
  2. AFLIBERCEPT [Suspect]
     Active Substance: AFLIBERCEPT
     Indication: METASTASES TO LUNG
     Dosage: 4 MG/KG, EVERY 2 WEEKS
     Route: 065
     Dates: start: 20160712
  3. FOLINIC ACID [Suspect]
     Active Substance: LEUCOVORIN
     Indication: METASTASES TO LUNG
     Dosage: EVERY 2 WEEKS
     Route: 065
     Dates: start: 20160712
  4. IRINOTECAN [Suspect]
     Active Substance: IRINOTECAN
     Indication: METASTASES TO LUNG
     Dosage: EVERY 2 WEEKS
     Route: 065
     Dates: start: 20160712
  5. OXALIPLATIN. [Suspect]
     Active Substance: OXALIPLATIN
     Indication: ADENOCARCINOMA OF COLON
     Dosage: UNK
     Route: 065
  6. FLUOROURACIL. [Suspect]
     Active Substance: FLUOROURACIL
     Indication: METASTASES TO LUNG
     Dosage: UNK, EVERY 2 WEEKS
     Route: 065
     Dates: start: 20160712

REACTIONS (3)
  - Posterior reversible encephalopathy syndrome [Recovered/Resolved]
  - Disease progression [Unknown]
  - Adenocarcinoma of colon [Unknown]
